FAERS Safety Report 9880378 (Version 1)
Quarter: 2014Q1

REPORT INFORMATION
  Report Type: Spontaneous
  Country: US (occurrence: None)
  Receive Date: 20140206
  Receipt Date: 20140206
  Transmission Date: 20141002
  Serious: No
  Sender: FDA-Public Use
  Company Number: None

PATIENT
  Age: 67 Year
  Sex: Female
  Weight: 62.14 kg

DRUGS (11)
  1. RECLAST [Suspect]
     Indication: BONE DENSITY ABNORMAL
     Dates: start: 20090810, end: 20090810
  2. CREON [Concomitant]
  3. ZOLPIDEM [Concomitant]
  4. GABAPENTIN [Concomitant]
  5. MECLIZINE [Concomitant]
  6. VIT D3 [Concomitant]
  7. ESCITALOPRAM [Concomitant]
  8. VESICARE [Concomitant]
  9. LATANOPROST [Concomitant]
  10. CALCIUM [Concomitant]
  11. VITS [Concomitant]

REACTIONS (5)
  - Parosmia [None]
  - Ageusia [None]
  - Hypophagia [None]
  - Weight decreased [None]
  - Food intolerance [None]
